FAERS Safety Report 8947954 (Version 1)
Quarter: 2012Q4

REPORT INFORMATION
  Report Type: Spontaneous
  Country: US (occurrence: None)
  Receive Date: 20121203
  Receipt Date: 20121203
  Transmission Date: 20130627
  Serious: Yes (Hospitalization, Other)
  Sender: FDA-Public Use
  Company Number: None

PATIENT
  Age: 44 Year
  Sex: Male
  Weight: 99.79 kg

DRUGS (1)
  1. ATORVASTATIN [Suspect]
     Dates: start: 20120101, end: 20121201

REACTIONS (4)
  - Abdominal pain upper [None]
  - Haematochezia [None]
  - Rectal haemorrhage [None]
  - Product contamination physical [None]
